FAERS Safety Report 4594017-4 (Version None)
Quarter: 2005Q1

REPORT INFORMATION
  Report Type: 
  Country: None (occurrence: None)
  Receive Date: 20050218
  Receipt Date: 20050209
  Transmission Date: 20050727
  Serious: Yes (Hospitalization)
  Sender: FDA-Public Use
  Company Number: 2005024842

PATIENT
  Age: 56 Year
  Sex: Female
  Weight: 49 kg

DRUGS (2)
  1. PROVERA [Suspect]
     Indication: OSTEOPOROSIS
     Dosage: 2.5 MG (DAILY), ORAL
     Route: 048
     Dates: start: 20000228, end: 20010125
  2. CONJUGATED ESTROGENS [Suspect]
     Indication: OSTEOPOROSIS
     Dosage: 0.625 MG (DAILY)
     Dates: start: 20000228, end: 20010125

REACTIONS (1)
  - BREAST CANCER FEMALE [None]
